FAERS Safety Report 4508644-3 (Version None)
Quarter: 2004Q4

REPORT INFORMATION
  Report Type: 
  Country: None (occurrence: None)
  Receive Date: 20041123
  Receipt Date: 20040510
  Transmission Date: 20050328
  Serious: No
  Sender: FDA-Public Use
  Company Number: US-GLAXOSMITHKLINE-A0510208A

PATIENT
  Age: 34 Year
  Sex: Female

DRUGS (4)
  1. WELLBUTRIN SR [Suspect]
     Dosage: 150MG TWICE PER DAY
     Route: 048
  2. WELLBUTRIN XL [Suspect]
  3. METFORMIN [Concomitant]
  4. ORAL CONTRACEPTIVES [Concomitant]

REACTIONS (7)
  - ANGER [None]
  - DISORIENTATION [None]
  - DISTURBANCE IN ATTENTION [None]
  - FATIGUE [None]
  - IRRITABILITY [None]
  - MOOD ALTERED [None]
  - NAUSEA [None]
